FAERS Safety Report 10576481 (Version 1)
Quarter: 2014Q4

REPORT INFORMATION
  Report Type: Report from Study
  Country: US (occurrence: US)
  Receive Date: 20141111
  Receipt Date: 20141111
  Transmission Date: 20150529
  Serious: Yes (Hospitalization)
  Sender: FDA-Public Use
  Company Number: US-ACTELION-A-NJ2014-107613

PATIENT
  Age: 39 Year
  Sex: Female

DRUGS (1)
  1. MACITENTAN [Suspect]
     Active Substance: MACITENTAN
     Indication: PULMONARY ARTERIAL HYPERTENSION
     Dosage: 10 MG, UNK
     Route: 048
     Dates: start: 20140513

REACTIONS (3)
  - Hepatic haemorrhage [Recovered/Resolved]
  - Fluid retention [Recovered/Resolved]
  - Stent placement [Recovered/Resolved]

NARRATIVE: CASE EVENT DATE: 20140910
